FAERS Safety Report 23039940 (Version 1)
Quarter: 2023Q4

REPORT INFORMATION
  Report Type: Spontaneous
  Country: IT (occurrence: IT)
  Receive Date: 20231006
  Receipt Date: 20231006
  Transmission Date: 20240110
  Serious: Yes (Other)
  Sender: FDA-Public Use
  Company Number: None

PATIENT
  Age: 49 Year
  Sex: Male

DRUGS (2)
  1. GEMCITABINE [Suspect]
     Active Substance: GEMCITABINE
     Indication: Pancreatic carcinoma metastatic
     Dosage: REACTIONS MANIFESTED AFTER THE FIRST CYCLE - START OF THERAPY 01/23/2023 - THERAPY ON DAY 1 - 8 - 15
     Dates: start: 20230130, end: 20230130
  2. ABRAXANE [Suspect]
     Active Substance: PACLITAXEL
     Indication: Pancreatic carcinoma metastatic
     Dosage: REACTIONS MANIFESTED AFTER THE FIRST CYCLE - START OF THERAPY 01/23/2023 - THERAPY ON DAYS 1 - 8 - 1
     Dates: start: 20230130, end: 20230130

REACTIONS (3)
  - Leukopenia [Recovering/Resolving]
  - Neutropenia [Recovering/Resolving]
  - Thrombocytopenia [Recovering/Resolving]

NARRATIVE: CASE EVENT DATE: 20230206
